FAERS Safety Report 4534324-4 (Version None)
Quarter: 2004Q4

REPORT INFORMATION
  Report Type: 
  Country: None (occurrence: None)
  Receive Date: 20041214
  Receipt Date: 20040813
  Transmission Date: 20050328
  Serious: No
  Sender: FDA-Public Use
  Company Number: 2004229194US

PATIENT
  Age: 80 Year
  Sex: Female
  Weight: 77.1 kg

DRUGS (6)
  1. BEXTRA [Suspect]
     Indication: POLYARTHRITIS
     Dosage: 20 MG, QD, ORAL
     Route: 048
     Dates: start: 20040728
  2. BEXTRA [Suspect]
     Dosage: 20 MG, QD
     Dates: start: 20040606, end: 20040617
  3. HYDROCHLOROTHIAZIDE [Concomitant]
  4. ASPIRIN [Concomitant]
  5. FOSAMAX [Concomitant]
  6. DETROL [Concomitant]

REACTIONS (2)
  - HYPERTONIC BLADDER [None]
  - RASH [None]
